FAERS Safety Report 18756894 (Version 1)
Quarter: 2021Q1

REPORT INFORMATION
  Report Type: Spontaneous
  Country: US (occurrence: US)
  Receive Date: 20210118
  Receipt Date: 20210118
  Transmission Date: 20210419
  Serious: Yes (Disabling)
  Sender: FDA-Public Use
  Company Number: None

PATIENT
  Age: 65 Year
  Sex: Female
  Weight: 43.56 kg

DRUGS (8)
  1. TUMS [Suspect]
     Active Substance: CALCIUM CARBONATE
     Indication: IRON DEFICIENCY
     Dosage: ?          QUANTITY:1 CAPSULE(S);OTHER FREQUENCY:4 IRON /2 WKS;?
     Route: 048
  2. CBDA OIL [Concomitant]
  3. SYNTHROID [Concomitant]
     Active Substance: LEVOTHYROXINE SODIUM
  4. CA++ CARBONATE [Concomitant]
  5. VITAMIN B COMPLEX [Concomitant]
     Active Substance: CYANOCOBALAMIN\DEXPANTHENOL\NIACINAMIDE\PYRIDOXINE HYDROCHLORIDE\RIBOFLAVIN 5^-PHOSPHATE SODIUM\THIAMINE HYDROCHLORIDE\VITAMIN B COMPLEX
  6. VITAMIN B12 [Concomitant]
     Active Substance: CYANOCOBALAMIN
  7. INTRAROSA [Concomitant]
     Active Substance: PRASTERONE
  8. RABEPRAZOLE [Concomitant]
     Active Substance: RABEPRAZOLE

REACTIONS (5)
  - Gastritis [None]
  - Nausea [None]
  - Product formulation issue [None]
  - Abdominal discomfort [None]
  - Physical product label issue [None]

NARRATIVE: CASE EVENT DATE: 20210103
